FAERS Safety Report 7910362-6 (Version None)
Quarter: 2011Q4

REPORT INFORMATION
  Report Type: 
  Country: None (occurrence: None)
  Receive Date: 20111111
  Receipt Date: 20111027
  Transmission Date: 20120403
  Serious: Yes (Hospitalization, Other)
  Sender: FDA-Public Use
  Company Number: US-ROCHE-1010363

PATIENT
  Age: 40 Year
  Sex: Male

DRUGS (7)
  1. VICTRELIS [Concomitant]
  2. PEGASYS [Suspect]
     Indication: HEPATITIS C
  3. PROVENTIL [Concomitant]
  4. NEUPOGEN [Concomitant]
  5. RIBAVIRIN [Suspect]
     Indication: HEPATITIS C
  6. FORADIL [Concomitant]
     Dates: start: 20110501
  7. PROCRIT [Concomitant]
     Dates: start: 20110501

REACTIONS (7)
  - ABDOMINAL PAIN UPPER [None]
  - DYSPNOEA [None]
  - NAUSEA [None]
  - COLON POLYPECTOMY [None]
  - GAIT DISTURBANCE [None]
  - DIZZINESS [None]
  - VOMITING [None]
